FAERS Safety Report 6390088-3 (Version None)
Quarter: 2009Q4

REPORT INFORMATION
  Report Type: 
  Country: None (occurrence: None)
  Receive Date: 20091006
  Receipt Date: 20090924
  Transmission Date: 20100525
  Serious: Yes (Other)
  Sender: FDA-Public Use
  Company Number: US-JNJFOC-20090907882

PATIENT
  Sex: Male

DRUGS (3)
  1. CHILDREN'S TYLENOL LIQUID DYE-FREE CHERRY [Suspect]
     Route: 048
  2. CHILDREN'S TYLENOL LIQUID DYE-FREE CHERRY [Suspect]
     Indication: MALAISE
     Route: 048
  3. IBUPROFEN [Concomitant]
     Indication: MALAISE
     Route: 048

REACTIONS (3)
  - EYE SWELLING [None]
  - SWELLING FACE [None]
  - TRANSMISSION OF AN INFECTIOUS AGENT VIA A MEDICINAL PRODUCT [None]
